FAERS Safety Report 20517307 (Version 1)
Quarter: 2022Q1

REPORT INFORMATION
  Report Type: Spontaneous
  Country: US (occurrence: US)
  Receive Date: 20220225
  Receipt Date: 20220225
  Transmission Date: 20220423
  Serious: No
  Sender: FDA-Public Use
  Company Number: US-RECORDATI RARE DISEASE INC.-2021003583

PATIENT

DRUGS (3)
  1. DESOXYN [Suspect]
     Active Substance: METHAMPHETAMINE HYDROCHLORIDE
     Indication: Attention deficit hyperactivity disorder
     Dosage: 5 MILLIGRAM, FIVE TIMES A DAY
     Route: 048
     Dates: start: 2021, end: 20210828
  2. ATENOLOL [Concomitant]
     Active Substance: ATENOLOL
     Indication: Hypertension
  3. OXYCODONE [Concomitant]
     Active Substance: OXYCODONE
     Indication: Arthritis

REACTIONS (2)
  - Therapy interrupted [Unknown]
  - Off label use [Unknown]
